FAERS Safety Report 10406383 (Version 1)
Quarter: 2014Q1

REPORT INFORMATION
  Report Type: Spontaneous
  Country: US (occurrence: None)
  Receive Date: 20140228
  Receipt Date: 20140228
  Transmission Date: 20141002
  Serious: No
  Sender: FDA-Public Use
  Company Number: 225174LEO

PATIENT
  Age: 45 Year
  Sex: Female

DRUGS (1)
  1. PICATO [Suspect]
     Indication: ACTINIC KERATOSIS
     Dosage: (ONCE DAILY FOR 3 DAYS), TOPICAL
     Route: 061
     Dates: start: 20131218

REACTIONS (4)
  - Application site pain [None]
  - Application site vesicles [None]
  - Application site dryness [None]
  - Drug administration error [None]
